FAERS Safety Report 10150951 (Version 1)
Quarter: 2014Q2

REPORT INFORMATION
  Report Type: Spontaneous
  Country: US (occurrence: US)
  Receive Date: 20140502
  Receipt Date: 20140502
  Transmission Date: 20141212
  Serious: No
  Sender: FDA-Public Use
  Company Number: US-PFIZER INC-2014121964

PATIENT
  Age: 70 Year
  Sex: Female
  Weight: 131.52 kg

DRUGS (2)
  1. CELEBREX [Suspect]
     Indication: ARTHRITIS
     Dosage: 200 MG, 2X/DAY
     Route: 048
     Dates: end: 201402
  2. CELEBREX [Suspect]
     Indication: FIBROMYALGIA

REACTIONS (2)
  - Off label use [Unknown]
  - Pain [Unknown]
